FAERS Safety Report 8375951-6 (Version None)
Quarter: 2012Q2

REPORT INFORMATION
  Report Type: 
  Country: None (occurrence: None)
  Receive Date: 20120522
  Receipt Date: 20120514
  Transmission Date: 20120825
  Serious: Yes (Hospitalization)
  Sender: FDA-Public Use
  Company Number: MY-ASTELLAS-2012US004712

PATIENT
  Sex: Male
  Weight: 66 kg

DRUGS (1)
  1. TARCEVA [Suspect]
     Indication: LUNG ADENOCARCINOMA
     Dosage: 100 MG, UID/QD
     Route: 048
     Dates: start: 20120202

REACTIONS (3)
  - INCORRECT DOSE ADMINISTERED [None]
  - PARONYCHIA [None]
  - PYOGENIC GRANULOMA [None]
